FAERS Safety Report 8165999-9 (Version None)
Quarter: 2012Q1

REPORT INFORMATION
  Report Type: 
  Country: None (occurrence: None)
  Receive Date: 20120227
  Receipt Date: 20110228
  Transmission Date: 20120608
  Serious: No
  Sender: FDA-Public Use
  Company Number: US-MYLANLABS-2011S1002099

PATIENT
  Age: 37 Year
  Sex: Female
  Weight: 72.58 kg

DRUGS (8)
  1. FOSAMAX [Concomitant]
  2. SYNTHROID [Concomitant]
  3. ADVAIR DISKUS 100/50 [Concomitant]
  4. AMNESTEEM [Suspect]
     Indication: SEBACEOUS HYPERPLASIA
     Route: 048
     Dates: start: 20100812
  5. SINGULAIR [Concomitant]
  6. PROTONIX [Concomitant]
  7. AMNESTEEM [Suspect]
     Route: 048
     Dates: end: 20101228
  8. ZOLOFT [Concomitant]

REACTIONS (2)
  - OFF LABEL USE [None]
  - HALLUCINATION [None]
